FAERS Safety Report 24587839 (Version 1)
Quarter: 2024Q4

REPORT INFORMATION
  Report Type: Spontaneous
  Country: GB (occurrence: GB)
  Receive Date: 20241107
  Receipt Date: 20241107
  Transmission Date: 20250115
  Serious: Yes (Other)
  Sender: RANBAXY
  Company Number: GB-SUN PHARMACEUTICAL INDUSTRIES LTD-2024RR-476929

PATIENT
  Sex: Male
  Weight: 85 kg

DRUGS (1)
  1. VALACYCLOVIR [Suspect]
     Active Substance: VALACYCLOVIR HYDROCHLORIDE
     Indication: Product used for unknown indication
     Dosage: 500MG BD
     Route: 065
     Dates: end: 20240901

REACTIONS (2)
  - Depressed mood [Recovered/Resolved]
  - Anhedonia [Recovered/Resolved]

NARRATIVE: CASE EVENT DATE: 20231002
